FAERS Safety Report 7537534-7 (Version None)
Quarter: 2011Q2

REPORT INFORMATION
  Report Type: 
  Country: None (occurrence: None)
  Receive Date: 20110609
  Receipt Date: 20070411
  Transmission Date: 20111010
  Serious: Yes (Hospitalization)
  Sender: FDA-Public Use
  Company Number: PHEH2007US01486

PATIENT
  Age: 61 Year
  Sex: Female

DRUGS (2)
  1. LOTREL [Suspect]
     Dosage: 5/20 MG, QD
     Route: 048
  2. PREMARIN [Suspect]

REACTIONS (1)
  - CEREBROVASCULAR ACCIDENT [None]
